FAERS Safety Report 18176283 (Version 1)
Quarter: 2020Q3

REPORT INFORMATION
  Report Type: Spontaneous
  Country: US (occurrence: US)
  Receive Date: 20200820
  Receipt Date: 20200820
  Transmission Date: 20201103
  Serious: Yes (Hospitalization)
  Sender: FDA-Public Use
  Company Number: US-MYLANLABS-2020M1072480

PATIENT
  Age: 44 Year
  Sex: Female

DRUGS (11)
  1. PROPOFOL. [Suspect]
     Active Substance: PROPOFOL
     Indication: ANAESTHESIA
     Dosage: 150 MILLIGRAM INDUCTION DOSE
     Route: 042
  2. PROPOFOL. [Suspect]
     Active Substance: PROPOFOL
     Dosage: 90 MICROGRAM/KILOGRAM, QMINUTE/CUMULATIVE DOSE 700MG
     Route: 042
  3. ROCURONIUM [Concomitant]
     Active Substance: ROCURONIUM BROMIDE
     Indication: ANAESTHESIA
     Dosage: 10 MILLIGRAM
     Route: 042
  4. SUCCINYLCHOLINE                    /00057701/ [Concomitant]
     Active Substance: SUCCINYLCHOLINE
     Indication: ANAESTHESIA
     Dosage: 100 MILLIGRAM
     Route: 042
  5. DECADRON [Concomitant]
     Active Substance: DEXAMETHASONE
     Indication: PROPHYLAXIS OF NAUSEA AND VOMITING
     Dosage: 10 MILLIGRAM
     Route: 065
  6. NARATRIPTAN [Suspect]
     Active Substance: NARATRIPTAN HYDROCHLORIDE
     Indication: MIGRAINE
     Dosage: 1 MILLIGRAM, PRN ASNECESSARY WITH ONE REPETITION
     Route: 065
  7. KETOROLAC [Concomitant]
     Active Substance: KETOROLAC TROMETHAMINE
     Indication: PAIN
     Dosage: 30 MILLIGRAM
     Route: 065
  8. REMIFENTANIL [Concomitant]
     Active Substance: REMIFENTANIL
     Indication: ANAESTHESIA
     Dosage: 0.3 MICROGRAM/KILOGRAM, QMINUTE
     Route: 042
  9. BUPROPION. [Suspect]
     Active Substance: BUPROPION
     Indication: DEPRESSION
     Dosage: 75 MILLIGRAM, DAILY
     Route: 065
  10. GLYCOPYRROLATE                     /00196201/ [Concomitant]
     Active Substance: GLYCOPYRRONIUM
     Indication: PROPHYLAXIS
     Dosage: 0.2 MILLIGRAM
     Route: 065
  11. ONDANSETRON [Suspect]
     Active Substance: ONDANSETRON
     Indication: PROPHYLAXIS OF NAUSEA AND VOMITING
     Dosage: 4 MILLIGRAM
     Route: 065

REACTIONS (5)
  - Dystonia [Recovered/Resolved]
  - Myalgia [Unknown]
  - Opisthotonus [Recovered/Resolved]
  - Emotional distress [Unknown]
  - Fatigue [Unknown]
